FAERS Safety Report 13884328 (Version 2)
Quarter: 2017Q3

REPORT INFORMATION
  Report Type: Spontaneous
  Country: CA (occurrence: CA)
  Receive Date: 20170821
  Receipt Date: 20170821
  Transmission Date: 20171127
  Serious: Yes (Hospitalization, Other)
  Sender: FDA-Public Use
  Company Number: CA-CIPLA LTD.-2017CA13832

PATIENT

DRUGS (4)
  1. RISPERIDONE. [Suspect]
     Active Substance: RISPERIDONE
     Dosage: 6 MG
     Route: 065
  2. ESCITALOPRAM [Suspect]
     Active Substance: ESCITALOPRAM OXALATE
     Dosage: 60 MG
     Route: 065
  3. FUROSEMIDE. [Suspect]
     Active Substance: FUROSEMIDE
     Indication: ANURIA
     Dosage: 200 MG
     Route: 040
  4. AMLODIPINE [Suspect]
     Active Substance: AMLODIPINE BESYLATE
     Dosage: 150 MG
     Route: 065

REACTIONS (13)
  - Intentional overdose [Unknown]
  - Polyuria [Recovered/Resolved]
  - Optic nerve injury [Unknown]
  - Hypokalaemia [Recovered/Resolved]
  - Altered state of consciousness [Recovered/Resolved]
  - Hypoglycaemia [Recovered/Resolved]
  - Shock [Recovered/Resolved]
  - Renal tubular necrosis [Recovered/Resolved]
  - Haemolysis [Unknown]
  - Pulmonary oedema [Recovered/Resolved]
  - Optic atrophy [Unknown]
  - Blindness [Unknown]
  - Toxicity to various agents [Unknown]
